FAERS Safety Report 12592518 (Version 2)
Quarter: 2016Q3

REPORT INFORMATION
  Report Type: Spontaneous
  Country: MY (occurrence: MY)
  Receive Date: 20160726
  Receipt Date: 20160731
  Transmission Date: 20161109
  Serious: Yes (Death, Other)
  Sender: FDA-Public Use
  Company Number: PHHY2016MY098447

PATIENT
  Age: 41 Year
  Sex: Male

DRUGS (1)
  1. IMATINIB [Suspect]
     Active Substance: IMATINIB
     Indication: CHRONIC MYELOID LEUKAEMIA
     Dosage: 400 MG, QD
     Route: 065

REACTIONS (16)
  - Orthopnoea [Fatal]
  - Exercise tolerance decreased [Fatal]
  - Malignant ascites [Fatal]
  - Febrile neutropenia [Fatal]
  - Thrombocytopenia [Fatal]
  - Pyrexia [Fatal]
  - Pleural effusion [Unknown]
  - Pulmonary tuberculosis [Unknown]
  - Oedema peripheral [Fatal]
  - Fibrosis [Fatal]
  - Blast crisis in myelogenous leukaemia [Fatal]
  - Coagulopathy [Fatal]
  - Leukaemic infiltration hepatic [Fatal]
  - Pneumonia fungal [Unknown]
  - Bicytopenia [Fatal]
  - Therapeutic response decreased [Unknown]
